FAERS Safety Report 12946477 (Version 1)
Quarter: 2016Q4

REPORT INFORMATION
  Report Type: Other
  Country: DE (occurrence: DE)
  Receive Date: 20161116
  Receipt Date: 20161116
  Transmission Date: 20170207
  Serious: Yes (Congenital Anomaly)
  Sender: FDA-Public Use
  Company Number: DE-LUPIN PHARMACEUTICALS INC.-E2B_00006562

PATIENT
  Age: 1 Day
  Sex: Male
  Weight: 3.05 kg

DRUGS (4)
  1. FOLIO FORTE (NEM) [Concomitant]
     Indication: PROPHYLAXIS OF NEURAL TUBE DEFECT
     Route: 064
     Dates: start: 20151014, end: 20160711
  2. LAMOTRIGINE. [Suspect]
     Active Substance: LAMOTRIGINE
     Dosage: FROM GESTATIONAL WEEK 19+6 400MG/DAY
     Route: 064
     Dates: end: 20160711
  3. LAMOTRIGINE. [Suspect]
     Active Substance: LAMOTRIGINE
     Dosage: FROM GESTATIONAL WEEK 11+1 200MG/DAY
     Route: 064
  4. LAMOTRIGINE. [Suspect]
     Active Substance: LAMOTRIGINE
     Indication: EPILEPSY
     Dosage: INITIAL DOSAGE 100MG/DAY
     Route: 064
     Dates: start: 20151014

REACTIONS (2)
  - Anal atresia [Recovered/Resolved with Sequelae]
  - Foetal exposure during pregnancy [Unknown]

NARRATIVE: CASE EVENT DATE: 20151014
